FAERS Safety Report 8574760-2 (Version None)
Quarter: 2012Q3

REPORT INFORMATION
  Report Type: 
  Country: None (occurrence: None)
  Receive Date: 20120807
  Receipt Date: 20120729
  Transmission Date: 20120928
  Serious: Yes (Other)
  Sender: FDA-Public Use
  Company Number: US-009507513-1208USA000154

PATIENT

DRUGS (4)
  1. ZOFRAN [Concomitant]
     Dosage: UNK
  2. REBETOL [Suspect]
     Indication: HEPATITIS C
     Dosage: UNK
     Dates: start: 20120713
  3. PEG-INTRON [Suspect]
     Indication: HEPATITIS C
     Dosage: UNK
     Dates: start: 20120713
  4. VICTRELIS [Suspect]
     Indication: HEPATITIS C

REACTIONS (5)
  - CHILLS [None]
  - FATIGUE [None]
  - WEIGHT DECREASED [None]
  - VOMITING [None]
  - DECREASED APPETITE [None]
